FAERS Safety Report 5405658-6 (Version None)
Quarter: 2007Q3

REPORT INFORMATION
  Report Type: 
  Country: None (occurrence: None)
  Receive Date: 20070806
  Receipt Date: 20070802
  Transmission Date: 20080115
  Serious: Yes (Death)
  Sender: FDA-Public Use
  Company Number: PHBS2007AT12744

PATIENT
  Sex: Female

DRUGS (3)
  1. EXJADE [Suspect]
     Dosage: UNK, UNK
     Route: 065
     Dates: start: 20070501, end: 20070501
  2. BLOOD TRANSFUSION, AUXILIARY PRODUCTS [Concomitant]
  3. DRUG THERAPY NOS [Concomitant]

REACTIONS (4)
  - ABDOMINAL DISCOMFORT [None]
  - ACUTE MYELOID LEUKAEMIA [None]
  - NAUSEA [None]
  - VOMITING [None]
